FAERS Safety Report 23501124 (Version 1)
Quarter: 2024Q1

REPORT INFORMATION
  Report Type: Spontaneous
  Country: US (occurrence: US)
  Receive Date: 20240208
  Receipt Date: 20240208
  Transmission Date: 20240409
  Serious: No
  Sender: FDA-Public Use
  Company Number: US-PERRIGO-23US000294

PATIENT
  Age: 88 Year
  Sex: Female
  Weight: 48.98 kg

DRUGS (11)
  1. CETIRIZINE HYDROCHLORIDE [Suspect]
     Active Substance: CETIRIZINE HYDROCHLORIDE
     Indication: Hypersensitivity
     Dosage: 10 MG, QD
     Route: 048
     Dates: start: 20221225, end: 20230101
  2. LEVOTHYROXINE [Concomitant]
     Active Substance: LEVOTHYROXINE\LEVOTHYROXINE SODIUM
     Indication: Thyroid disorder
     Dosage: UNK
     Route: 065
  3. ATORVASTATIN [Concomitant]
     Active Substance: ATORVASTATIN
     Indication: Blood cholesterol
     Dosage: UNK
     Route: 065
  4. METOPROLOL [Concomitant]
     Active Substance: METOPROLOL
     Indication: Product used for unknown indication
     Dosage: UNK
     Route: 065
  5. MINERALS\VITAMINS [Concomitant]
     Active Substance: MINERALS\VITAMINS
     Indication: Supplementation therapy
     Dosage: UNK
     Route: 065
  6. VITAMIN D3 [Concomitant]
     Active Substance: CHOLECALCIFEROL
     Indication: Osteoporosis
     Dosage: UNK
     Route: 065
  7. ASPIRIN [Concomitant]
     Active Substance: ASPIRIN
     Indication: Routine health maintenance
     Dosage: 81 MG
     Route: 065
  8. MAGNESIUM [Concomitant]
     Active Substance: MAGNESIUM
     Indication: Routine health maintenance
     Dosage: UNK
     Route: 065
  9. LUTEIN\MINERALS\VITAMINS\ZEAXANTHIN [Concomitant]
     Active Substance: LUTEIN\MINERALS\VITAMINS\ZEAXANTHIN
     Indication: Macular degeneration
     Dosage: UNK
     Route: 065
  10. NAC [DICLOFENAC SODIUM] [Concomitant]
     Indication: Supplementation therapy
     Dosage: UNK
     Route: 065
  11. PROLIA [Concomitant]
     Active Substance: DENOSUMAB
     Indication: Osteoporosis
     Dosage: UNK
     Route: 030
     Dates: start: 2021

REACTIONS (2)
  - Somnolence [Recovered/Resolved]
  - Product administered to patient of inappropriate age [Unknown]

NARRATIVE: CASE EVENT DATE: 20221225
